FAERS Safety Report 5270865-2 (Version None)
Quarter: 2007Q1

REPORT INFORMATION
  Report Type: 
  Country: None (occurrence: None)
  Receive Date: 20070315
  Receipt Date: 20070305
  Transmission Date: 20070707
  Serious: Yes (Other)
  Sender: FDA-Public Use
  Company Number: S07-NLD-01107-01

PATIENT
  Age: 80 Year
  Sex: Female
  Weight: 63 kg

DRUGS (4)
  1. CITALOPRAM HYDROBROMIDE [Suspect]
     Indication: DEPRESSION
     Dosage: 20 MG QD PO
     Route: 048
     Dates: start: 20070213
  2. SELOKEEN  (METOPROLOL TARTRATE) [Suspect]
     Indication: HYPERTENSION
     Dosage: 50 MG QD PO
     Route: 048
     Dates: start: 20060601, end: 20070216
  3. PARACETAMOLUM (PARACETAMOL) [Concomitant]
  4. PRUNASINE (MANDELONITRILE GLUCOSIDE) [Concomitant]

REACTIONS (2)
  - CIRCULATORY COLLAPSE [None]
  - SINUS BRADYCARDIA [None]
